FAERS Safety Report 5307553-X (Version None)
Quarter: 2007Q2

REPORT INFORMATION
  Report Type: 
  Country: None (occurrence: None)
  Receive Date: 20070425
  Receipt Date: 20070412
  Transmission Date: 20071010
  Serious: Yes (Hospitalization)
  Sender: FDA-Public Use
  Company Number: US-ELI_LILLY_AND_COMPANY-US200704003041

PATIENT
  Age: 61 Year
  Sex: Female

DRUGS (5)
  1. FORTEO [Suspect]
     Indication: OSTEOPOROSIS
     Dates: start: 20050401, end: 20070410
  2. CALCIUM [Concomitant]
     Dosage: 1000 MG, UNK
  3. VITAMIN D [Concomitant]
  4. ATENOLOL [Concomitant]
  5. COZAAR [Concomitant]

REACTIONS (17)
  - BLOOD PRESSURE ABNORMAL [None]
  - BLOOD PRESSURE DECREASED [None]
  - BONE DENSITY DECREASED [None]
  - COLD SWEAT [None]
  - CRYING [None]
  - DIZZINESS [None]
  - DRUG INEFFECTIVE [None]
  - FEAR [None]
  - GAIT DISTURBANCE [None]
  - INJECTION SITE BRUISING [None]
  - INJECTION SITE PAIN [None]
  - MYALGIA [None]
  - NERVOUSNESS [None]
  - OPEN WOUND [None]
  - PERIPHERAL VASCULAR DISORDER [None]
  - PRESYNCOPE [None]
  - VISUAL DISTURBANCE [None]
